FAERS Safety Report 16740225 (Version 3)
Quarter: 2019Q3

REPORT INFORMATION
  Report Type: Spontaneous
  Country: JP (occurrence: JP)
  Receive Date: 20190826
  Receipt Date: 20190924
  Transmission Date: 20191005
  Serious: Yes (Other)
  Sender: FDA-Public Use
  Company Number: JP-009507513-1908JPN002245J

PATIENT
  Age: 26 Year
  Sex: Male

DRUGS (1)
  1. PREVYMIS [Suspect]
     Active Substance: LETERMOVIR
     Indication: ANTIVIRAL PROPHYLAXIS
     Dosage: UNK
     Route: 048
     Dates: start: 20190809, end: 201908

REACTIONS (1)
  - Cytomegalovirus infection [Unknown]

NARRATIVE: CASE EVENT DATE: 201908
